FAERS Safety Report 21547271 (Version 3)
Quarter: 2022Q4

REPORT INFORMATION
  Report Type: Spontaneous
  Country: US (occurrence: US)
  Receive Date: 20221103
  Receipt Date: 20221216
  Transmission Date: 20230113
  Serious: Yes (Other)
  Sender: FDA-Public Use
  Company Number: US-SA-SAC20221031000599

PATIENT
  Age: 43 Year
  Sex: Female

DRUGS (1)
  1. AUBAGIO [Suspect]
     Active Substance: TERIFLUNOMIDE
     Indication: Multiple sclerosis
     Dosage: 14 MG , QD
     Route: 048
     Dates: start: 202205

REACTIONS (7)
  - Hallucination, visual [Unknown]
  - Condition aggravated [Unknown]
  - Dysarthria [Not Recovered/Not Resolved]
  - Dysphagia [Unknown]
  - Hypertransaminasaemia [Unknown]
  - Stress [Unknown]
  - Abdominal pain upper [Unknown]

NARRATIVE: CASE EVENT DATE: 20221020
